FAERS Safety Report 15697213 (Version 1)
Quarter: 2018Q4

REPORT INFORMATION
  Report Type: Spontaneous
  Country: US (occurrence: US)
  Receive Date: 20181206
  Receipt Date: 20181206
  Transmission Date: 20190205
  Serious: No
  Sender: FDA-Public Use
  Company Number: US-ASTRAZENECA-2018SF20152

PATIENT
  Age: 22 Year
  Sex: Male
  Weight: 74.8 kg

DRUGS (1)
  1. SYMBICORT [Suspect]
     Active Substance: BUDESONIDE\FORMOTEROL FUMARATE DIHYDRATE
     Indication: ASTHMA
     Dosage: 160-4.5 MCG
     Route: 055
     Dates: start: 20180918, end: 20180918

REACTIONS (2)
  - Muscle twitching [Recovered/Resolved]
  - Feeling jittery [Unknown]
